FAERS Safety Report 18503980 (Version 1)
Quarter: 2020Q4

REPORT INFORMATION
  Report Type: Report from Study
  Country: US (occurrence: US)
  Receive Date: 20201113
  Receipt Date: 20201113
  Transmission Date: 20210114
  Serious: No
  Sender: FDA-Public Use
  Company Number: US-TAKEDA-2020TUS049522

PATIENT
  Age: 78 Year
  Sex: Male

DRUGS (13)
  1. TEDUGLUTIDE [Suspect]
     Active Substance: TEDUGLUTIDE
     Dosage: 3.94 UNK
     Route: 065
     Dates: start: 20190306
  2. OXYCODONE [Concomitant]
     Active Substance: OXYCODONE
     Dosage: 5 MILLIGRAM, QD
     Route: 048
  3. TEDUGLUTIDE [Suspect]
     Active Substance: TEDUGLUTIDE
     Indication: PRODUCT USED FOR UNKNOWN INDICATION
     Dosage: 5 MILLIGRAM, 1/WEEK
     Route: 065
     Dates: start: 201803, end: 20190301
  4. TEDUGLUTIDE [Suspect]
     Active Substance: TEDUGLUTIDE
     Dosage: 3.94 UNK
     Route: 065
     Dates: start: 20190306
  5. TEDUGLUTIDE [Suspect]
     Active Substance: TEDUGLUTIDE
     Indication: PRODUCT USED FOR UNKNOWN INDICATION
     Dosage: 5 MILLIGRAM, 1/WEEK
     Route: 065
     Dates: start: 201803, end: 20190301
  6. TEDUGLUTIDE [Suspect]
     Active Substance: TEDUGLUTIDE
     Dosage: 3.94 UNK
     Route: 065
     Dates: start: 20190306
  7. MEGACE ES [Concomitant]
     Active Substance: MEGESTROL ACETATE
     Indication: WEIGHT DECREASED
     Dosage: 625 MILLIGRAM, QD
     Route: 048
  8. VITAMIN C [Concomitant]
     Active Substance: ASCORBIC ACID
     Indication: SUPPLEMENTATION THERAPY
     Dosage: 160 MILLIGRAM, QD
     Route: 048
  9. MEGACE ES [Concomitant]
     Active Substance: MEGESTROL ACETATE
     Indication: PROPHYLAXIS
  10. TEDUGLUTIDE [Suspect]
     Active Substance: TEDUGLUTIDE
     Indication: PRODUCT USED FOR UNKNOWN INDICATION
     Dosage: 5 MILLIGRAM, 1/WEEK
     Route: 065
     Dates: start: 201803, end: 20190301
  11. TEDUGLUTIDE [Suspect]
     Active Substance: TEDUGLUTIDE
     Indication: PRODUCT USED FOR UNKNOWN INDICATION
     Dosage: 5 MILLIGRAM, 1/WEEK
     Route: 065
     Dates: start: 201803, end: 20190301
  12. NYSTATIN. [Concomitant]
     Active Substance: NYSTATIN
     Dosage: 100000 INTERNATIONAL UNIT, QD
     Route: 048
  13. TEDUGLUTIDE [Suspect]
     Active Substance: TEDUGLUTIDE
     Dosage: 3.94 UNK
     Route: 065
     Dates: start: 20190306

REACTIONS (1)
  - Squamous cell carcinoma [Not Recovered/Not Resolved]

NARRATIVE: CASE EVENT DATE: 20200819
